FAERS Safety Report 8742346 (Version 2)
Quarter: 2013Q4

REPORT INFORMATION
  Report Type: Spontaneous
  Country: US (occurrence: US)
  Receive Date: 20120824
  Receipt Date: 20131101
  Transmission Date: 20140711
  Serious: No
  Sender: FDA-Public Use
  Company Number: US-009507513-1208USA000178

PATIENT
  Sex: 0

DRUGS (1)
  1. TEMODAR [Suspect]
     Dosage: 2300 MG, ONCE
     Route: 048
     Dates: start: 20120724, end: 20120724

REACTIONS (2)
  - Overdose [Unknown]
  - No adverse event [Unknown]
